FAERS Safety Report 10793535 (Version 1)
Quarter: 2015Q1

REPORT INFORMATION
  Report Type: Report from Study
  Country: CA (occurrence: CA)
  Receive Date: 20150213
  Receipt Date: 20150213
  Transmission Date: 20150721
  Serious: Yes (Other)
  Sender: FDA-Public Use
  Company Number: CA-JNJFOC-20150203813

PATIENT
  Sex: Female
  Weight: 68.8 kg

DRUGS (3)
  1. ALESSE 28 [Concomitant]
     Active Substance: ETHINYL ESTRADIOL\LEVONORGESTREL
     Route: 065
  2. REMICADE [Suspect]
     Active Substance: INFLIXIMAB
     Indication: COLITIS ULCERATIVE
     Route: 042
     Dates: start: 20110207
  3. REMICADE [Suspect]
     Active Substance: INFLIXIMAB
     Indication: COLITIS ULCERATIVE
     Route: 042
     Dates: start: 20141205

REACTIONS (1)
  - Lupus-like syndrome [Not Recovered/Not Resolved]

NARRATIVE: CASE EVENT DATE: 2014
